FAERS Safety Report 24587415 (Version 1)
Quarter: 2024Q4

REPORT INFORMATION
  Report Type: Spontaneous
  Country: DK (occurrence: DK)
  Receive Date: 20241107
  Receipt Date: 20241107
  Transmission Date: 20250115
  Serious: Yes (Other)
  Sender: GLAXOSMITHKLINE
  Company Number: None

PATIENT

DRUGS (7)
  1. BELIMUMAB [Suspect]
     Active Substance: BELIMUMAB
     Indication: Systemic lupus erythematosus
     Dosage: UNK
     Route: 065
  2. AZATHIOPRINE [Suspect]
     Active Substance: AZATHIOPRINE
     Indication: Systemic lupus erythematosus
     Dosage: UNK
     Route: 065
  3. METHOTREXATE [Suspect]
     Active Substance: METHOTREXATE
     Indication: Systemic lupus erythematosus
     Dosage: UNK
     Route: 065
  4. MYCOPHENOLATE MOFETIL [Suspect]
     Active Substance: MYCOPHENOLATE MOFETIL
     Indication: Systemic lupus erythematosus
     Dosage: UNK
     Route: 065
  5. ANIFROLUMAB [Suspect]
     Active Substance: ANIFROLUMAB
     Indication: Systemic lupus erythematosus
     Dosage: 300 MG (300 MG/ 28 DAYS)
     Route: 065
  6. HYDROXYCHLOROQUINE [Concomitant]
     Active Substance: HYDROXYCHLOROQUINE
     Indication: Systemic lupus erythematosus
     Dosage: 400 MG, QD
     Route: 065
  7. PREDNISOLONE [Concomitant]
     Active Substance: PREDNISOLONE
     Indication: Systemic lupus erythematosus
     Dosage: 10 MG, QD
     Route: 065

REACTIONS (10)
  - Systemic lupus erythematosus [Recovered/Resolved]
  - Alopecia [Unknown]
  - Pyrexia [Unknown]
  - Headache [Not Recovered/Not Resolved]
  - Cognitive disorder [Not Recovered/Not Resolved]
  - Rash [Recovered/Resolved]
  - Neuralgia [Recovered/Resolved]
  - Varicella zoster virus infection [Recovered/Resolved]
  - Off label use [Unknown]
  - Drug ineffective [Unknown]
